FAERS Safety Report 15835096 (Version 1)
Quarter: 2019Q1

REPORT INFORMATION
  Report Type: Spontaneous
  Country: GB (occurrence: GB)
  Receive Date: 20190116
  Receipt Date: 20190116
  Transmission Date: 20190417
  Serious: Yes (Other)
  Sender: FDA-Public Use
  Company Number: GB-TEVA-2019-GB-998466

PATIENT
  Age: 40 Year
  Sex: Female
  Weight: 57.15 kg

DRUGS (2)
  1. MODAFINIL. [Suspect]
     Active Substance: MODAFINIL
     Indication: HYPERSOMNIA
     Route: 048
     Dates: start: 2012, end: 2013
  2. CITALOPRAM [Concomitant]
     Active Substance: CITALOPRAM HYDROBROMIDE
     Dosage: STILL BEING TAKEN

REACTIONS (2)
  - Defaecation urgency [Not Recovered/Not Resolved]
  - Reaction to food additive [Not Recovered/Not Resolved]

NARRATIVE: CASE EVENT DATE: 2012
